FAERS Safety Report 6983828-3 (Version None)
Quarter: 2010Q3

REPORT INFORMATION
  Report Type: 
  Country: None (occurrence: None)
  Receive Date: 20100914
  Receipt Date: 20090227
  Transmission Date: 20110219
  Serious: No
  Sender: FDA-Public Use
  Company Number: US-WYE-H08420709

PATIENT
  Sex: Male

DRUGS (1)
  1. ADVIL LIQUI-GELS [Suspect]

REACTIONS (4)
  - DERMATITIS [None]
  - FOOD ALLERGY [None]
  - GASTROINTESTINAL DISORDER [None]
  - HYPERSENSITIVITY [None]
